FAERS Safety Report 7473219-3 (Version None)
Quarter: 2011Q2

REPORT INFORMATION
  Report Type: 
  Country: None (occurrence: None)
  Receive Date: 20110511
  Receipt Date: 20110503
  Transmission Date: 20111010
  Serious: Yes (Hospitalization)
  Sender: FDA-Public Use
  Company Number: B0714314A

PATIENT
  Age: 64 Year
  Sex: Female
  Weight: 115 kg

DRUGS (11)
  1. AVANDIA [Suspect]
     Indication: DIABETES MELLITUS
     Dosage: 8MG PER DAY
     Route: 048
     Dates: start: 20050101, end: 20100101
  2. FEXOFENADINE [Concomitant]
  3. AVANDAMET [Suspect]
     Indication: DIABETES MELLITUS
     Route: 048
     Dates: start: 20010101, end: 20050101
  4. LISINOPRIL [Concomitant]
  5. VICODIN [Concomitant]
  6. VYTORIN [Concomitant]
  7. CITALOPRAM HYDROBROMIDE [Concomitant]
  8. CELEXA [Concomitant]
  9. METFORMIN HCL [Concomitant]
  10. ZOLPIDEM [Concomitant]
  11. ZOCOR [Concomitant]

REACTIONS (6)
  - CARDIAC FAILURE CONGESTIVE [None]
  - APPENDICITIS [None]
  - URINARY TRACT INFECTION [None]
  - PNEUMONIA [None]
  - MYOCARDIAL INFARCTION [None]
  - MEMORY IMPAIRMENT [None]
